FAERS Safety Report 6327576-1 (Version None)
Quarter: 2009Q3

REPORT INFORMATION
  Report Type: 
  Country: None (occurrence: None)
  Receive Date: 20090825
  Receipt Date: 20090817
  Transmission Date: 20100115
  Serious: Yes (Other)
  Sender: FDA-Public Use
  Company Number: US-ELI_LILLY_AND_COMPANY-US200908003634

PATIENT
  Sex: Female

DRUGS (2)
  1. HUMALOG [Suspect]
  2. LANTUS [Concomitant]

REACTIONS (5)
  - ANXIETY [None]
  - BLOOD GLUCOSE INCREASED [None]
  - GLUCOSE URINE PRESENT [None]
  - PRODUCT PACKAGING QUANTITY ISSUE [None]
  - RENAL DISORDER [None]
